FAERS Safety Report 4771029-9 (Version None)
Quarter: 2005Q3

REPORT INFORMATION
  Report Type: 
  Country: None (occurrence: None)
  Receive Date: 20050914
  Receipt Date: 20050818
  Transmission Date: 20060218
  Serious: Yes (Hospitalization)
  Sender: FDA-Public Use
  Company Number: 2005BI015658

PATIENT
  Age: 35 Year
  Sex: Female
  Weight: 130 kg

DRUGS (2)
  1. AVONEX [Suspect]
     Indication: MULTIPLE SCLEROSIS
     Dosage: 30 UG;QW IM
     Route: 030
     Dates: start: 20050501
  2. PARACETAMOL [Concomitant]

REACTIONS (7)
  - COORDINATION ABNORMAL [None]
  - DEPRESSION [None]
  - MULTIPLE SCLEROSIS RELAPSE [None]
  - MUSCLE SPASTICITY [None]
  - NUCLEAR MAGNETIC RESONANCE IMAGING ABNORMAL [None]
  - SLEEP DISORDER [None]
  - URINARY INCONTINENCE [None]
